FAERS Safety Report 8236463-3 (Version None)
Quarter: 2012Q1

REPORT INFORMATION
  Report Type: 
  Country: None (occurrence: None)
  Receive Date: 20120327
  Receipt Date: 20120316
  Transmission Date: 20120608
  Serious: Yes (Hospitalization)
  Sender: FDA-Public Use
  Company Number: US-BAYER-2011-082058

PATIENT
  Age: 32 Year
  Sex: Female
  Weight: 57 kg

DRUGS (37)
  1. TOPAMAX [Concomitant]
     Indication: MIGRAINE
     Dosage: 50 MG, UNK
     Route: 048
     Dates: start: 20071109
  2. MAGNESIUM [Concomitant]
     Indication: BLOOD MAGNESIUM DECREASED
  3. ZOMIG [Concomitant]
     Dosage: UNK UNK, PRN
  4. FLUCONAZOLE [Concomitant]
     Dosage: 150 MG, UNK
     Route: 048
     Dates: start: 20080515
  5. ACETAMINOPHEN AND OXYCODONE HCL [Concomitant]
     Indication: PAIN
     Dosage: UNK
     Route: 048
     Dates: start: 20080606, end: 20080625
  6. SUMAVEL DOSEPRO INJECTIONS [Concomitant]
  7. ZOFRAN [Concomitant]
     Indication: NAUSEA
  8. FOLIC ACID [Concomitant]
     Dosage: 1 MG, UNK
     Route: 048
     Dates: start: 20070706, end: 20080101
  9. MULTIVITAMINS WITH MINERALS [MULTIVITAMINS WITH MINERALS] [Concomitant]
  10. EFFEXOR [Concomitant]
     Dosage: 75 MG, UNK
     Route: 048
     Dates: start: 20080610
  11. PREVACID [Concomitant]
     Indication: GASTROOESOPHAGEAL REFLUX DISEASE
     Dosage: 150 UNK, UNK
     Route: 048
  12. NSAID'S [Concomitant]
     Indication: DYSMENORRHOEA
     Dosage: UNK UNK, PRN
  13. TOPIRAMATE [Concomitant]
     Indication: MIGRAINE
  14. ANTIHYPERTENSIVES [Concomitant]
     Indication: MIGRAINE
  15. BACTRIM [Concomitant]
  16. ZOFRAN [Concomitant]
     Indication: VOMITING
  17. YASMIN [Suspect]
     Indication: CONTRACEPTION
     Dosage: UNK
     Dates: start: 20070730, end: 20091127
  18. CIPROFLOXACIN [Concomitant]
     Dosage: UNK
     Route: 048
     Dates: start: 20080606
  19. SULFAMETHOXAZOLE [Concomitant]
     Dosage: UNK
     Route: 048
     Dates: start: 20080625
  20. SUMATRIPTAN SUCCINATE [Concomitant]
     Indication: MIGRAINE
  21. COMPAZINE [Concomitant]
  22. ACETAMINOPHEN AND OXYCODONE HCL [Concomitant]
     Dosage: UNK
     Route: 048
     Dates: start: 20080606, end: 20080625
  23. EFFEXOR [Concomitant]
     Dosage: 75 MG, UNK
     Route: 048
     Dates: start: 20080610
  24. KETOROLAC TROMETHAMINE [Concomitant]
     Indication: MIGRAINE
  25. TREXIMET [Concomitant]
     Indication: MIGRAINE
  26. IMITREX [Concomitant]
     Indication: MIGRAINE
     Dosage: UNK UNK, PRN
  27. DIHYDROERGOTAMINE MESYLATE [Concomitant]
     Indication: MIGRAINE
  28. MIGRANAL [Concomitant]
     Indication: MIGRAINE
     Route: 045
  29. OMEPRAZOLE [Concomitant]
     Dosage: UNK
     Dates: start: 20050101
  30. ANTIBIOTICS [Concomitant]
     Indication: URINARY TRACT INFECTION
  31. ASCORBIC ACID [Concomitant]
  32. NSAID'S [Concomitant]
     Indication: PAIN
  33. NSAID'S [Concomitant]
     Indication: HEADACHE
  34. ZOLMITRIPTAN [Concomitant]
     Indication: MIGRAINE
  35. DHE [DIHYDROERGOTAMINE MESILATE] [Concomitant]
     Indication: MIGRAINE
  36. DROSPIRENONE AND ETHINYL ESTRADIOL [Suspect]
     Indication: CONTRACEPTION
     Dosage: UNK
     Dates: start: 20070730, end: 20091127
  37. ZOMIG [Concomitant]
     Indication: MIGRAINE

REACTIONS (10)
  - PAIN [None]
  - RENAL FAILURE ACUTE [None]
  - CHOLECYSTITIS CHRONIC [None]
  - GALLBLADDER DISORDER [None]
  - INJURY [None]
  - APPENDICITIS PERFORATED [None]
  - CHOLELITHIASIS [None]
  - APPENDICECTOMY [None]
  - MENTAL DISORDER [None]
  - PANCREATITIS ACUTE [None]
